FAERS Safety Report 7982905-8 (Version None)
Quarter: 2011Q4

REPORT INFORMATION
  Report Type: 
  Country: None (occurrence: None)
  Receive Date: 20111215
  Receipt Date: 20111205
  Transmission Date: 20120403
  Serious: Yes (Death)
  Sender: FDA-Public Use
  Company Number: PHHY2011US108537

PATIENT
  Age: 62 Year
  Sex: Female

DRUGS (6)
  1. CARBAMAZEPINE [Suspect]
     Route: 048
  2. SYNTHROID [Suspect]
     Route: 048
  3. AMITRIPTYLINE HCL [Suspect]
     Route: 048
  4. FUROSEMIDE [Suspect]
     Route: 048
  5. PERPHENAZINE [Suspect]
     Route: 048
  6. SIMVASTATIN [Suspect]
     Route: 048

REACTIONS (1)
  - COMPLETED SUICIDE [None]
